FAERS Safety Report 13303942 (Version 1)
Quarter: 2017Q1

REPORT INFORMATION
  Report Type: Not Available
  Country: US (occurrence: US)
  Receive Date: 20170307
  Receipt Date: 20170307
  Transmission Date: 20170428
  Serious: Yes (Life-Threatening)
  Sender: FDA-Public Use
  Company Number: US--2017-US-000019

PATIENT
  Age: 47 Year
  Sex: Female
  Weight: 110 kg

DRUGS (3)
  1. PREGABALIN. [Concomitant]
     Active Substance: PREGABALIN
     Indication: PRODUCT USED FOR UNKNOWN INDICATION
     Dosage: 150 MG ONCE DAILY
     Route: 048
  2. AMLODIPINE BESYLATE BRAND UNSPECIFIED (VIVIMED) [Suspect]
     Active Substance: AMLODIPINE BESYLATE
     Indication: PRODUCT USED FOR UNKNOWN INDICATION
     Dosage: 5 MG ONCE DAILY (70 TABLETS)
     Route: 048
  3. ZIPRASIDONE. [Concomitant]
     Active Substance: ZIPRASIDONE
     Indication: PRODUCT USED FOR UNKNOWN INDICATION
     Dosage: 60 MG ONCE DAILY
     Route: 048

REACTIONS (3)
  - Overdose [None]
  - Tachycardia [Recovered/Resolved]
  - Shock [None]
